FAERS Safety Report 10177498 (Version 1)
Quarter: 2014Q2

REPORT INFORMATION
  Report Type: Spontaneous
  Country: GB (occurrence: GB)
  Receive Date: 20140512
  Receipt Date: 20140512
  Transmission Date: 20141212
  Serious: Yes (Death, Other)
  Sender: FDA-Public Use
  Company Number: GB-PFIZER INC-2014128699

PATIENT
  Age: 79 Year
  Sex: Female
  Weight: 42 kg

DRUGS (9)
  1. PHENYTOIN SODIUM [Suspect]
     Indication: CONVULSION
     Dosage: 1 G, UNK
     Route: 042
     Dates: start: 20140331, end: 20140415
  2. APIXABAN [Concomitant]
     Dosage: 2.5 MG, 2X/DAY
  3. ATENOLOL [Concomitant]
     Dosage: UNK
  4. HYPOTEARS [Concomitant]
     Dosage: UNK
  5. LORAZEPAM [Concomitant]
     Dosage: UNK
  6. LANSOPRAZOLE [Concomitant]
     Dosage: UNK
  7. SERTRALINE [Concomitant]
     Dosage: UNK
  8. THIAMINE [Concomitant]
     Dosage: UNK
  9. VITAMIN B COMPLEX STRONG [Concomitant]
     Dosage: UNK

REACTIONS (4)
  - Peripheral artery thrombosis [Fatal]
  - Dry gangrene [Fatal]
  - Cyanosis [Not Recovered/Not Resolved]
  - Skin lesion [Unknown]
